FAERS Safety Report 8373096-2 (Version None)
Quarter: 2012Q2

REPORT INFORMATION
  Report Type: 
  Country: None (occurrence: None)
  Receive Date: 20120521
  Receipt Date: 20120518
  Transmission Date: 20120825
  Serious: Yes (Other)
  Sender: FDA-Public Use
  Company Number: US-PFIZER INC-2012121442

PATIENT
  Sex: Female
  Weight: 70.3 kg

DRUGS (1)
  1. NITROSTAT [Suspect]
     Indication: ANGINA PECTORIS
     Dosage: 0.8 MG (TWO 0.4MG), AS NEEDED
     Route: 060
     Dates: start: 19960101

REACTIONS (4)
  - HEADACHE [None]
  - DRUG INEFFECTIVE [None]
  - ANGINA PECTORIS [None]
  - PARAESTHESIA ORAL [None]
